FAERS Safety Report 4844970-6 (Version None)
Quarter: 2005Q4

REPORT INFORMATION
  Report Type: 
  Country: None (occurrence: None)
  Receive Date: 20051129
  Receipt Date: 20051116
  Transmission Date: 20060501
  Serious: Yes (Death, Hospitalization, Other)
  Sender: FDA-Public Use
  Company Number: 2005158014

PATIENT
  Age: 74 Year
  Sex: Female

DRUGS (4)
  1. SULFASALAZINE [Suspect]
     Indication: RHEUMATOID ARTHRITIS
     Dates: end: 20050601
  2. PREDNISONE [Suspect]
     Indication: RHEUMATOID ARTHRITIS
     Dates: end: 20050601
  3. TIOPRONIN [Suspect]
     Indication: RHEUMATOID ARTHRITIS
     Dates: end: 20050601
  4. BUCILLAMINE (BUCILLAMINE) [Suspect]
     Indication: RHEUMATOID ARTHRITIS
     Dates: end: 20050601

REACTIONS (7)
  - COUGH [None]
  - CYTOMEGALOVIRUS INFECTION [None]
  - DYSPNOEA EXERTIONAL [None]
  - FUNGAL DNA TEST POSITIVE [None]
  - LUNG DISORDER [None]
  - RHEUMATOID LUNG [None]
  - THERAPY NON-RESPONDER [None]
